FAERS Safety Report 21349732 (Version 2)
Quarter: 2022Q4

REPORT INFORMATION
  Report Type: Spontaneous
  Country: US (occurrence: US)
  Receive Date: 20220919
  Receipt Date: 20221028
  Transmission Date: 20230112
  Serious: No
  Sender: FDA-Public Use
  Company Number: US-PFIZER INC-202101104923

PATIENT
  Age: 47 Year
  Sex: Female

DRUGS (1)
  1. XELJANZ XR [Suspect]
     Active Substance: TOFACITINIB CITRATE
     Dosage: 11 MG
     Dates: start: 20191010, end: 20221019

REACTIONS (4)
  - Therapeutic product effect incomplete [Unknown]
  - Product dose omission issue [Unknown]
  - Arthralgia [Unknown]
  - Musculoskeletal stiffness [Unknown]
